FAERS Safety Report 8204266-1 (Version None)
Quarter: 2012Q1

REPORT INFORMATION
  Report Type: 
  Country: None (occurrence: None)
  Receive Date: 20120313
  Receipt Date: 20120306
  Transmission Date: 20120608
  Serious: Yes (Hospitalization)
  Sender: FDA-Public Use
  Company Number: DE-SANOFI-AVENTIS-2012SA014920

PATIENT
  Sex: Female

DRUGS (4)
  1. ARAVA [Suspect]
     Indication: RHEUMATOID ARTHRITIS
     Route: 048
  2. PREDNISOLONE [Concomitant]
  3. METOPROLOL SUCCINATE [Concomitant]
  4. PANTOPRAZOLE [Concomitant]

REACTIONS (1)
  - HISTAMINE INTOLERANCE [None]
